FAERS Safety Report 7449022-7 (Version None)
Quarter: 2011Q2

REPORT INFORMATION
  Report Type: 
  Country: None (occurrence: None)
  Receive Date: 20110429
  Receipt Date: 20090603
  Transmission Date: 20111010
  Serious: Yes (Other)
  Sender: FDA-Public Use
  Company Number: DE-GENENTECH-317711

PATIENT
  Age: 82 Year
  Sex: Female

DRUGS (1)
  1. LUCENTIS [Suspect]
     Indication: MACULAR DEGENERATION
     Route: 031

REACTIONS (11)
  - WHITE BLOOD CELL COUNT DECREASED [None]
  - BURSITIS [None]
  - TOOTH LOSS [None]
  - VISION BLURRED [None]
  - ABSCESS [None]
  - EYE INJURY [None]
  - FALL [None]
  - VISUAL ACUITY REDUCED [None]
  - CONTUSION [None]
  - STRESS [None]
  - VISUAL IMPAIRMENT [None]
